FAERS Safety Report 4873400-3 (Version None)
Quarter: 2005Q4

REPORT INFORMATION
  Report Type: 
  Country: None (occurrence: None)
  Receive Date: 20051201
  Receipt Date: 20050708
  Transmission Date: 20060501
  Serious: No
  Sender: FDA-Public Use
  Company Number: 2005PV000309

PATIENT
  Age: 55 Year
  Sex: Female
  Weight: 112.9457 kg

DRUGS (8)
  1. BYETTA [Suspect]
     Indication: DIABETES MELLITUS NON-INSULIN-DEPENDENT
     Dosage: 5 MCG;BID;SC
     Route: 058
     Dates: start: 20050622
  2. DIOVAN [Concomitant]
  3. LEVOTHROID [Concomitant]
  4. ZOLOFT [Concomitant]
  5. ACTOS [Concomitant]
  6. HUMULIN N [Concomitant]
  7. METFORMIN [Concomitant]
  8. HUMULIN R [Concomitant]

REACTIONS (4)
  - BLOOD GLUCOSE INCREASED [None]
  - DECREASED APPETITE [None]
  - NAUSEA [None]
  - WEIGHT DECREASED [None]
